FAERS Safety Report 6181449-6 (Version None)
Quarter: 2009Q2

REPORT INFORMATION
  Report Type: 
  Country: None (occurrence: None)
  Receive Date: 20090505
  Receipt Date: 20090505
  Transmission Date: 20091009
  Serious: Yes (Hospitalization)
  Sender: FDA-Public Use
  Company Number: None

PATIENT
  Sex: Female
  Weight: 47.6277 kg

DRUGS (1)
  1. CIPROFLOXACIN HCL 500 MG IVAX PHARM. [Suspect]
     Indication: URINARY TRACT INFECTION
     Dosage: 1 TABLET BID PO, 1 DOSAGE
     Route: 048
     Dates: start: 20090503, end: 20090503

REACTIONS (1)
  - DRUG HYPERSENSITIVITY [None]
